FAERS Safety Report 6101327-8 (Version None)
Quarter: 2009Q1

REPORT INFORMATION
  Report Type: 
  Country: None (occurrence: None)
  Receive Date: 20090303
  Receipt Date: 20090303
  Transmission Date: 20090719
  Serious: Yes (Other)
  Sender: FDA-Public Use
  Company Number: None

PATIENT
  Sex: Male
  Weight: 21 kg

DRUGS (1)
  1. LAMOTRIGINE CHEWABLE DISPERSIBLE [Suspect]
     Indication: EPILEPSY
     Dosage: 25 MG 1 AM, 2 PM ORAL
     Route: 048
     Dates: start: 20070901, end: 20070927

REACTIONS (2)
  - CONVULSION [None]
  - THERAPEUTIC RESPONSE UNEXPECTED WITH DRUG SUBSTITUTION [None]
